FAERS Safety Report 6285067-0 (Version None)
Quarter: 2009Q3

REPORT INFORMATION
  Report Type: 
  Country: None (occurrence: None)
  Receive Date: 20090727
  Receipt Date: 20090717
  Transmission Date: 20100115
  Serious: Yes (Hospitalization)
  Sender: FDA-Public Use
  Company Number: JP-ABBOTT-09P-087-0500319-00

PATIENT
  Sex: Female
  Weight: 37.5 kg

DRUGS (21)
  1. HUMIRA [Suspect]
     Indication: RHEUMATOID ARTHRITIS
     Route: 058
     Dates: start: 20081023, end: 20081225
  2. HUMIRA [Suspect]
     Dates: start: 20090226, end: 20090326
  3. HUMIRA [Suspect]
     Dates: start: 20090604
  4. CELECOXIB [Concomitant]
     Indication: RHEUMATOID ARTHRITIS
     Dosage: 400 MG DAILY
     Route: 048
  5. METHOTREXATE [Concomitant]
     Indication: RHEUMATOID ARTHRITIS
     Dosage: PER WEEK
     Route: 048
     Dates: end: 20090124
  6. METHOTREXATE [Concomitant]
     Dates: start: 20090130
  7. FOLIC ACID [Concomitant]
     Indication: VITAMIN SUPPLEMENTATION
     Dosage: PER WEEK
     Route: 048
  8. SODIUM AUROTHIOMALATE [Concomitant]
     Indication: RHEUMATOID ARTHRITIS
     Route: 048
  9. PREDNISOLONE [Concomitant]
     Indication: RHEUMATOID ARTHRITIS
     Dosage: 2 MG DAILY
     Route: 048
     Dates: end: 20081106
  10. PREDNISOLONE [Concomitant]
     Dosage: 1 MG DAILY
     Route: 048
     Dates: start: 20081107, end: 20081204
  11. DEXAMETHASONE [Concomitant]
     Indication: DRUG USE FOR UNKNOWN INDICATION
     Dosage: 1.2 MG DAILY
     Route: 048
     Dates: start: 20090207, end: 20090312
  12. DEXAMETHASONE [Concomitant]
     Dosage: 1.0 MG DAILY
     Dates: start: 20090313, end: 20090408
  13. DEXAMETHASONE [Concomitant]
     Dosage: 0.9 MG DAILY
     Route: 048
     Dates: start: 20090409, end: 20090426
  14. DEXAMETHASONE [Concomitant]
     Dosage: 0.8 MG DAILY
     Route: 048
     Dates: start: 20090427
  15. OMEPRAZOLE [Concomitant]
     Indication: PROPHYLAXIS AGAINST GASTROINTESTINAL ULCER
     Dates: start: 20090205
  16. SULFAMETHOXAZOLE AND TRIMETHOPRIM [Concomitant]
     Indication: PROPHYLAXIS
     Dosage: ONE TAB DAILY
     Dates: start: 20090205
  17. SULFAMETHOXAZOLE AND TRIMETHOPRIM [Concomitant]
     Indication: PNEUMONIA
  18. ISONIAZID [Concomitant]
     Indication: ANTIBIOTIC PROPHYLAXIS
     Dosage: 3 TABLETS DAILY
     Dates: start: 20090203
  19. SODIUM RISEDRONATE HYDRATE [Concomitant]
     Indication: OSTEOPOROSIS PROPHYLAXIS
     Dates: start: 20090204
  20. VALACYCLOVIR [Concomitant]
     Indication: HERPES ZOSTER
     Dosage: 300 MG DAILY
     Dates: start: 20090409, end: 20090416
  21. VIDARABINE [Concomitant]
     Indication: HERPES ZOSTER
     Dosage: 0.5 GRAM DAILY
     Dates: start: 20090409, end: 20090416

REACTIONS (4)
  - JOINT SWELLING [None]
  - OEDEMA PERIPHERAL [None]
  - PAIN IN EXTREMITY [None]
  - POLYMYALGIA RHEUMATICA [None]
